FAERS Safety Report 20866223 (Version 1)
Quarter: 2022Q2

REPORT INFORMATION
  Report Type: Spontaneous
  Country: US (occurrence: US)
  Receive Date: 20220524
  Receipt Date: 20220524
  Transmission Date: 20220720
  Serious: No
  Sender: FDA-Public Use
  Company Number: US-TEVA-2022-US-2038566

PATIENT

DRUGS (2)
  1. LORAZEPAM [Suspect]
     Active Substance: LORAZEPAM
     Route: 065
  2. ATIVAN [Suspect]
     Active Substance: LORAZEPAM
     Route: 065

REACTIONS (2)
  - Dizziness [Unknown]
  - Palpitations [Unknown]
